FAERS Safety Report 7504111-3 (Version None)
Quarter: 2011Q2

REPORT INFORMATION
  Report Type: 
  Country: None (occurrence: None)
  Receive Date: 20110525
  Receipt Date: 20110520
  Transmission Date: 20111010
  Serious: No
  Sender: FDA-Public Use
  Company Number: US-PFIZER INC-2011111062

PATIENT
  Sex: Female
  Weight: 39.002 kg

DRUGS (2)
  1. AZITHROMYCIN [Concomitant]
     Indication: SINUSITIS
     Dosage: 6.5 ML, DAILY
     Route: 048
     Dates: start: 20110501
  2. CHILDREN'S ADVIL [Suspect]
     Indication: PYREXIA
     Dosage: 1-1/2 TESPOONS
     Route: 048
     Dates: start: 20110520

REACTIONS (1)
  - ABDOMINAL PAIN UPPER [None]
